FAERS Safety Report 19660191 (Version 2)
Quarter: 2021Q3

REPORT INFORMATION
  Report Type: Spontaneous
  Country: CA (occurrence: CA)
  Receive Date: 20210805
  Receipt Date: 20210831
  Transmission Date: 20211014
  Serious: Yes (Other)
  Sender: FDA-Public Use
  Company Number: CA-APOTEX-2021AP024293

PATIENT
  Sex: Female

DRUGS (1)
  1. APO?ARIPIPRAZOLE [Suspect]
     Active Substance: ARIPIPRAZOLE
     Indication: INSOMNIA
     Dosage: UNK
     Route: 048
     Dates: start: 20210713

REACTIONS (6)
  - Dizziness [Unknown]
  - Drug ineffective [Unknown]
  - Loss of consciousness [Unknown]
  - Joint injury [Unknown]
  - Dysstasia [Unknown]
  - Fall [Unknown]

NARRATIVE: CASE EVENT DATE: 20210713
